FAERS Safety Report 7222746-2 (Version None)
Quarter: 2011Q1

REPORT INFORMATION
  Report Type: 
  Country: None (occurrence: None)
  Receive Date: 20110112
  Receipt Date: 20080306
  Transmission Date: 20110831
  Serious: Yes (Other)
  Sender: FDA-Public Use
  Company Number: PHHY2008MX37258

PATIENT
  Sex: Male

DRUGS (1)
  1. TEGRETOL [Suspect]
     Indication: EPILEPSY
     Dosage: 27 ML, QD
     Dates: start: 20071215

REACTIONS (4)
  - HEPATITIS A [None]
  - FAECES DISCOLOURED [None]
  - JAUNDICE [None]
  - CHROMATURIA [None]
